FAERS Safety Report 17085873 (Version 4)
Quarter: 2020Q1

REPORT INFORMATION
  Report Type: Report from Study
  Country: None (occurrence: US)
  Receive Date: 20191128
  Receipt Date: 20200103
  Transmission Date: 20200409
  Serious: Yes (Hospitalization, Other)
  Sender: FDA-Public Use
  Company Number: US-ABBVIE-19K-163-3168282-00

PATIENT
  Age: 61 Year
  Sex: Female
  Weight: 52.21 kg

DRUGS (1)
  1. DUOPA [Suspect]
     Active Substance: CARBIDOPA\LEVODOPA
     Indication: PARKINSON^S DISEASE
     Route: 050
     Dates: start: 20180419

REACTIONS (9)
  - Abdominal pain upper [Unknown]
  - Stoma site discharge [Unknown]
  - Hypophagia [Unknown]
  - Intestinal obstruction [Recovered/Resolved]
  - Stoma site haemorrhage [Unknown]
  - Neoplasm malignant [Unknown]
  - Infection [Unknown]
  - Fall [Unknown]
  - Nausea [Recovering/Resolving]

NARRATIVE: CASE EVENT DATE: 201910
